FAERS Safety Report 24306549 (Version 1)
Quarter: 2024Q3

REPORT INFORMATION
  Report Type: Spontaneous
  Country: DK (occurrence: DK)
  Receive Date: 20240911
  Receipt Date: 20240911
  Transmission Date: 20241016
  Serious: Yes (Other)
  Sender: STRIDES
  Company Number: DK-STRIDES ARCOLAB LIMITED-2024SP011484

PATIENT
  Age: 16 Year

DRUGS (6)
  1. OXYCODONE [Suspect]
     Active Substance: OXYCODONE
     Indication: Product used for unknown indication
     Dosage: UNK
     Route: 065
  2. TRAMADOL [Suspect]
     Active Substance: TRAMADOL\TRAMADOL HYDROCHLORIDE
     Indication: Product used for unknown indication
     Dosage: 225 MILLIGRAM
     Route: 048
  3. TRAMADOL [Suspect]
     Active Substance: TRAMADOL\TRAMADOL HYDROCHLORIDE
     Dosage: UNK (INGESTED TWICE)
     Route: 065
  4. TAPENTADOL [Suspect]
     Active Substance: TAPENTADOL
     Indication: Product used for unknown indication
     Dosage: UNK (RECEIVED THROUGH TAMOLL X TABLET 225MG)
     Route: 048
  5. CARISOPRODOL [Suspect]
     Active Substance: CARISOPRODOL
     Indication: Product used for unknown indication
     Dosage: UNK (RECEIVED THROUGH TAMOLL X TABLET 225MG)
     Route: 048
  6. BUPRENORPHINE [Concomitant]
     Active Substance: BUPRENORPHINE
     Indication: Product used for unknown indication
     Dosage: UNK (RECEIVED LOW DOSE; 0.4-2MG IN FIVE STEPS DURING THE FIRST 24H )
     Route: 065

REACTIONS (10)
  - Cyanosis [Unknown]
  - Slow speech [Unknown]
  - Withdrawal syndrome [Recovered/Resolved]
  - Muscular weakness [Unknown]
  - Chest pain [Unknown]
  - Rash [Unknown]
  - Miosis [Unknown]
  - Toxicity to various agents [Unknown]
  - Drug dependence [Unknown]
  - Drug abuse [Unknown]
